FAERS Safety Report 7312326-2 (Version None)
Quarter: 2011Q1

REPORT INFORMATION
  Report Type: 
  Country: None (occurrence: None)
  Receive Date: 20110214
  Receipt Date: 20110202
  Transmission Date: 20110831
  Serious: Yes (Hospitalization)
  Sender: FDA-Public Use
  Company Number: 2011AP000197

PATIENT
  Age: 74 Year
  Sex: Female

DRUGS (8)
  1. ASPIRIN [Concomitant]
  2. GLICLAZIDE (GLICLAZIDE) [Concomitant]
  3. ISOSORBIDE MONONITRATE [Concomitant]
  4. BISOPROLOL (BISOPROLOL) [Concomitant]
  5. DIGOXIN [Concomitant]
  6. CLARITHROMYCIN [Suspect]
     Indication: LOWER RESPIRATORY TRACT INFECTION
     Dosage: 500 MG;BID, PO
     Route: 048
     Dates: start: 20101230, end: 20110205
  7. WARFARIN SODIUM [Suspect]
     Indication: ATRIAL FIBRILLATION
     Route: 048
     Dates: start: 20100201
  8. LISINOPRIL [Concomitant]

REACTIONS (6)
  - ABDOMINAL PAIN [None]
  - HAEMATOMA [None]
  - POTENTIATING DRUG INTERACTION [None]
  - HAEMOGLOBIN DECREASED [None]
  - LOWER RESPIRATORY TRACT INFECTION [None]
  - INTERNATIONAL NORMALISED RATIO INCREASED [None]
